FAERS Safety Report 18149076 (Version 1)
Quarter: 2020Q3

REPORT INFORMATION
  Report Type: Report from Study
  Country: NZ (occurrence: NZ)
  Receive Date: 20200813
  Receipt Date: 20200813
  Transmission Date: 20201103
  Serious: Yes (Hospitalization, Other)
  Sender: FDA-Public Use
  Company Number: NZ-BAXTER-2020BAX016248

PATIENT
  Age: 8 Year
  Sex: Female
  Weight: 20.3 kg

DRUGS (13)
  1. ENDOXAN, 2000MG, POWDER FOR INJECTION [Suspect]
     Active Substance: CYCLOPHOSPHAMIDE
     Indication: NEUROBLASTOMA
     Dosage: CYCLES 1 AND 2: 400 MG/M2/DOSE (DAYS 1?5; FOR BSA LESS THAN 0.6 M2)
     Route: 041
     Dates: start: 20200508
  2. ENDOXAN, 2000MG, POWDER FOR INJECTION [Suspect]
     Active Substance: CYCLOPHOSPHAMIDE
     Dosage: TOTAL DOSE ADMINISTERED OVER COURSE 1 AND 2 IS 3310 MG
     Route: 041
     Dates: end: 20200605
  3. TOPOTECAN [Suspect]
     Active Substance: TOPOTECAN HYDROCHLORIDE
     Dosage: TOTAL DOSE ADMINISTERED OVER COURSE 1 AND 2 IS 10 MG
     Route: 041
     Dates: end: 20200605
  4. ETOPOSIDE. [Suspect]
     Active Substance: ETOPOSIDE
     Route: 041
     Dates: start: 20200622, end: 20200624
  5. UNITUXIN [Suspect]
     Active Substance: DINUTUXIMAB
     Indication: NEUROBLASTOMA
     Dosage: IV INFUSION, CYCLE 1
     Route: 041
     Dates: start: 20200508
  6. ETOPOSIDE. [Suspect]
     Active Substance: ETOPOSIDE
     Dosage: CYCLE 3 AND 5: 200 MG/M2/DOSE, (DAYS 1?3; FOR BSA LESS THAN 0.6 M2),
     Route: 041
  7. CISPLATIN. [Suspect]
     Active Substance: CISPLATIN
     Indication: NEUROBLASTOMA
     Dosage: CYCLE 1
     Route: 041
     Dates: start: 20200508
  8. TOPOTECAN [Suspect]
     Active Substance: TOPOTECAN HYDROCHLORIDE
     Indication: NEUROBLASTOMA
     Dosage: CYCLES 1 AND 2: 1.2 MG/M2, (DAYS 1?5; FOR BSA LESS THAN 0.6 M2)
     Route: 041
     Dates: start: 20200508
  9. ETOPOSIDE. [Suspect]
     Active Substance: ETOPOSIDE
     Indication: NEUROBLASTOMA
     Dosage: CYCLE 1
     Route: 041
     Dates: start: 20200508
  10. UNITUXIN [Suspect]
     Active Substance: DINUTUXIMAB
     Dosage: IV INFUSION, LAST DOSE OF DINUTUXIMAB (CYCLE 3, DAY 5)
     Route: 041
     Dates: start: 20200623, end: 20200626
  11. UNITUXIN [Suspect]
     Active Substance: DINUTUXIMAB
     Dosage: IV INFUSION, CYCLE 3 AND 5 FOR UNITUXIN WAS 17.5 MG/M2/DOSE ON DAYS 2?5
     Route: 041
  12. CISPLATIN. [Suspect]
     Active Substance: CISPLATIN
     Route: 041
     Dates: start: 20200622, end: 20200624
  13. CISPLATIN. [Suspect]
     Active Substance: CISPLATIN
     Dosage: CYCLE 3 AND 5: 60 MG/M2/DOSE, (DAYS 1?3; FOR BSA LESS THAN 0.6 M2),
     Route: 041

REACTIONS (1)
  - Chylothorax [Recovering/Resolving]

NARRATIVE: CASE EVENT DATE: 20200627
